FAERS Safety Report 5828559-8 (Version None)
Quarter: 2008Q3

REPORT INFORMATION
  Report Type: 
  Country: None (occurrence: None)
  Receive Date: 20080731
  Receipt Date: 20080723
  Transmission Date: 20090109
  Serious: Yes (Other)
  Sender: FDA-Public Use
  Company Number: AU-ASTRAZENECA-2008AP05710

PATIENT
  Age: 71 Year
  Sex: Male

DRUGS (1)
  1. NEXIUM [Suspect]
     Dosage: LONG TERM TREATMENT
     Route: 048

REACTIONS (2)
  - BENIGN GASTRIC NEOPLASM [None]
  - GASTRIC MUCOSAL HYPERTROPHY [None]
